FAERS Safety Report 7804589-1 (Version None)
Quarter: 2011Q4

REPORT INFORMATION
  Report Type: 
  Country: None (occurrence: None)
  Receive Date: 20111010
  Receipt Date: 20111005
  Transmission Date: 20120403
  Serious: Yes (Other)
  Sender: FDA-Public Use
  Company Number: US-AMGEN-QUU424253

PATIENT
  Age: 89 Year
  Sex: Female

DRUGS (10)
  1. FAMOTIDINE [Concomitant]
  2. ISOSORBIDE MONONITRATE [Concomitant]
     Dosage: UNK UNK, UNK
     Dates: start: 20100106
  3. NPLATE [Suspect]
     Indication: IDIOPATHIC THROMBOCYTOPENIC PURPURA
     Dosage: 65 MUG, QWK
     Route: 058
     Dates: start: 20090514, end: 20110707
  4. PRAVASTATIN [Concomitant]
     Dosage: UNK UNK, UNK
     Dates: start: 20100106
  5. ASPIRIN [Concomitant]
     Dosage: UNK UNK, UNK
     Dates: start: 20100106
  6. ACETAMINOPHEN AND HYDROCODONE BITARTRATE [Concomitant]
     Dosage: UNK UNK, UNK
     Dates: start: 20100106
  7. BENAZEPRIL HYDROCHLORIDE [Concomitant]
     Dosage: UNK UNK, UNK
     Dates: start: 20100106
  8. GLYCERYL TRINITRATE [Concomitant]
     Dosage: UNK UNK, UNK
     Dates: start: 20100106
  9. METOPROLOL TARTRATE [Concomitant]
     Dosage: UNK UNK, UNK
     Dates: start: 20100106
  10. TEMAZEPAM [Concomitant]

REACTIONS (1)
  - TRANSIENT ISCHAEMIC ATTACK [None]
